FAERS Safety Report 4549424-2 (Version None)
Quarter: 2005Q1

REPORT INFORMATION
  Report Type: 
  Country: None (occurrence: None)
  Receive Date: 20050111
  Receipt Date: 20050104
  Transmission Date: 20050727
  Serious: Yes (Hospitalization)
  Sender: FDA-Public Use
  Company Number: 200510050FR

PATIENT
  Age: 87 Year
  Sex: Male

DRUGS (6)
  1. HEMI-DAONIL [Suspect]
     Indication: DIABETES MELLITUS NON-INSULIN-DEPENDENT
     Route: 048
     Dates: start: 20000101
  2. EFFERALGAN [Suspect]
     Route: 048
     Dates: start: 20030101
  3. RIMACTANE [Suspect]
     Route: 048
     Dates: start: 20041030
  4. CLAMOXYL [Suspect]
     Route: 048
     Dates: start: 20041030
  5. MOPRAL [Suspect]
     Route: 048
     Dates: start: 20030101
  6. OMIX [Suspect]
     Route: 048
     Dates: start: 19990101

REACTIONS (3)
  - CYTOLYTIC HEPATITIS [None]
  - HEPATITIS CHOLESTATIC [None]
  - LYMPHOPENIA [None]
